FAERS Safety Report 8799140 (Version 1)
Quarter: 2012Q4

REPORT INFORMATION
  Report Type: 
  Country: US (occurrence: US)
  Receive Date: 20120920
  Receipt Date: 20120920
  Transmission Date: 20130627
  Serious: No
  Sender: FDA-Public Use
  Company Number: US-ASTRAZENECA-2012SE08870

PATIENT
  Sex: Male

DRUGS (3)
  1. LISINOPRIL [Suspect]
  2. TOPROL XL [Suspect]
     Route: 048
  3. CRESTOR [Suspect]
     Route: 048

REACTIONS (4)
  - Eye pain [Unknown]
  - Dry eye [Unknown]
  - Headache [Recovering/Resolving]
  - Off label use [Unknown]
